FAERS Safety Report 16155817 (Version 6)
Quarter: 2019Q3

REPORT INFORMATION
  Report Type: Report from Study
  Country: None (occurrence: US)
  Receive Date: 20190404
  Receipt Date: 20190716
  Transmission Date: 20191004
  Serious: Yes (Hospitalization, Other)
  Sender: FDA-Public Use
  Company Number: US-ABBVIE-19K-163-2726018-00

PATIENT
  Age: 75 Year
  Sex: Male
  Weight: 72.64 kg

DRUGS (30)
  1. LASIX [Suspect]
     Active Substance: FUROSEMIDE
     Indication: PRODUCT USED FOR UNKNOWN INDICATION
     Route: 065
     Dates: end: 20190521
  2. SINEMET [Concomitant]
     Active Substance: CARBIDOPA\LEVODOPA
     Indication: PARKINSON^S DISEASE
     Dosage: 25/100 MG
  3. LEVAQUIN [Concomitant]
     Active Substance: LEVOFLOXACIN
     Indication: ANTIBIOTIC PROPHYLAXIS
  4. FLOMAX [Concomitant]
     Active Substance: TAMSULOSIN HYDROCHLORIDE
     Indication: PROSTATOMEGALY
  5. NORCO [Concomitant]
     Active Substance: ACETAMINOPHEN\HYDROCODONE BITARTRATE
     Indication: MUSCULOSKELETAL PAIN
  6. ALDACTONE [Concomitant]
     Active Substance: SPIRONOLACTONE
     Indication: FLUID IMBALANCE
  7. ATORVASTATIN [Concomitant]
     Active Substance: ATORVASTATIN
     Indication: PRODUCT USED FOR UNKNOWN INDICATION
  8. DECITABINE. [Suspect]
     Active Substance: DECITABINE
     Indication: ACUTE MYELOID LEUKAEMIA
     Dosage: WEEK 1 OF 28 DAY CYCLE, 5 DAYS EVERY 6 WEEKS
     Route: 065
  9. LOSARTAN. [Concomitant]
     Active Substance: LOSARTAN
     Indication: PRODUCT USED FOR UNKNOWN INDICATION
     Dates: end: 20190520
  10. LOSARTAN. [Concomitant]
     Active Substance: LOSARTAN
     Indication: BLOOD PRESSURE DECREASED
  11. PRAVASTATIN. [Concomitant]
     Active Substance: PRAVASTATIN
     Indication: AORTIC DISORDER
  12. COENZYME Q10 [Concomitant]
     Active Substance: UBIDECARENONE
     Indication: SUPPLEMENTATION THERAPY
  13. VENCLEXTA [Suspect]
     Active Substance: VENETOCLAX
     Indication: ACUTE MYELOID LEUKAEMIA
     Route: 048
     Dates: start: 20190315, end: 20190411
  14. VENCLEXTA [Suspect]
     Active Substance: VENETOCLAX
     Route: 048
     Dates: start: 201906
  15. CO SALT [Concomitant]
     Indication: PRODUCT USED FOR UNKNOWN INDICATION
  16. DEXAMETHASONE. [Concomitant]
     Active Substance: DEXAMETHASONE
     Indication: NAUSEA
     Route: 042
  17. OMEGA 3 [Concomitant]
     Active Substance: OMEGA-3 FATTY ACIDS
     Indication: PRODUCT USED FOR UNKNOWN INDICATION
  18. ELIQUIS [Concomitant]
     Active Substance: APIXABAN
     Indication: ATRIAL FIBRILLATION
     Dates: start: 2018
  19. TOPROL XL [Concomitant]
     Active Substance: METOPROLOL SUCCINATE
     Indication: CARDIOVASCULAR DISORDER
  20. TAMSULOSIN [Concomitant]
     Active Substance: TAMSULOSIN
     Indication: PRODUCT USED FOR UNKNOWN INDICATION
  21. METAMUCIL [Concomitant]
     Active Substance: PLANTAGO SEED
     Indication: CONSTIPATION
  22. VENCLEXTA [Suspect]
     Active Substance: VENETOCLAX
     Route: 048
     Dates: start: 20190315, end: 20190411
  23. VENCLEXTA [Suspect]
     Active Substance: VENETOCLAX
     Route: 048
     Dates: start: 201905, end: 201906
  24. ZOFRAN [Concomitant]
     Active Substance: ONDANSETRON HYDROCHLORIDE
     Indication: NAUSEA
     Route: 042
  25. METOPROLOL. [Concomitant]
     Active Substance: METOPROLOL
     Indication: PRODUCT USED FOR UNKNOWN INDICATION
     Dates: end: 201905
  26. ZOVIRAX [Concomitant]
     Active Substance: ACYCLOVIR
     Indication: ANTIVIRAL PROPHYLAXIS
  27. MIRALAX [Concomitant]
     Active Substance: POLYETHYLENE GLYCOL 3350
     Indication: CONSTIPATION
  28. DACOGEN [Suspect]
     Active Substance: DECITABINE
     Indication: ACUTE MYELOID LEUKAEMIA
     Dosage: PER DAY 1-5 OF 28 DAY CYCLE
     Route: 042
     Dates: start: 20190315, end: 20190324
  29. NOXAFIL [Concomitant]
     Active Substance: POSACONAZOLE
     Indication: ANTIFUNGAL TREATMENT
  30. TRAMADOL. [Concomitant]
     Active Substance: TRAMADOL
     Indication: PRODUCT USED FOR UNKNOWN INDICATION

REACTIONS (34)
  - Oropharyngeal discomfort [Recovered/Resolved]
  - Troponin increased [Recovered/Resolved]
  - Asthenia [Not Recovered/Not Resolved]
  - Dizziness postural [Recovered/Resolved]
  - Asthenia [Recovering/Resolving]
  - Peripheral swelling [Recovering/Resolving]
  - Hospitalisation [Unknown]
  - Feeling abnormal [Recovering/Resolving]
  - Blood pressure orthostatic decreased [Recovered/Resolved]
  - Platelet count decreased [Recovering/Resolving]
  - Dehydration [Recovered/Resolved]
  - Skin exfoliation [Recovering/Resolving]
  - Rash [Recovered/Resolved]
  - Fatigue [Not Recovered/Not Resolved]
  - White blood cell count decreased [Recovering/Resolving]
  - Skin abrasion [Unknown]
  - Fall [Unknown]
  - Chest discomfort [Recovered/Resolved]
  - Weight increased [Recovering/Resolving]
  - Weight decreased [Not Recovered/Not Resolved]
  - Muscular weakness [Not Recovered/Not Resolved]
  - Fluid retention [Recovered/Resolved]
  - Balance disorder [Not Recovered/Not Resolved]
  - Choking [Recovered/Resolved]
  - Acute myeloid leukaemia [Unknown]
  - Platelet count decreased [Unknown]
  - Gastrointestinal pain [Recovered/Resolved]
  - Weight increased [Recovered/Resolved]
  - Chest pain [Recovered/Resolved]
  - Haemoglobin decreased [Recovering/Resolving]
  - Platelet count decreased [Recovering/Resolving]
  - Muscle discomfort [Recovering/Resolving]
  - Muscle atrophy [Not Recovered/Not Resolved]
  - Therapeutic product effect variable [Unknown]

NARRATIVE: CASE EVENT DATE: 2019
